FAERS Safety Report 11055796 (Version 1)
Quarter: 2015Q2

REPORT INFORMATION
  Report Type: Spontaneous
  Country: US (occurrence: US)
  Receive Date: 20150422
  Receipt Date: 20150422
  Transmission Date: 20150821
  Serious: Yes (Death, Hospitalization, Other)
  Sender: FDA-Public Use
  Company Number: US-GILEAD-2015-0149625

PATIENT
  Age: 51 Year
  Sex: Female

DRUGS (2)
  1. SOVALDI [Suspect]
     Active Substance: SOFOSBUVIR
     Indication: HEPATITIS C
     Dosage: UNK
     Route: 065
     Dates: start: 20140113, end: 201406
  2. RIBAVIRIN. [Concomitant]
     Active Substance: RIBAVIRIN
     Indication: HEPATITIS C
     Dosage: UNK
     Dates: start: 20140113, end: 201406

REACTIONS (14)
  - Dyspnoea [Unknown]
  - Chest pain [Unknown]
  - Type 2 diabetes mellitus [Unknown]
  - Nausea [Unknown]
  - Death [Fatal]
  - Hyperbilirubinaemia [Unknown]
  - Pleural effusion [Unknown]
  - Portal vein thrombosis [Unknown]
  - Diarrhoea [Unknown]
  - Hepatitis acute [Unknown]
  - Pneumonia [Recovered/Resolved]
  - Glomerulonephritis [Unknown]
  - Hypoxia [Unknown]
  - Hypotension [Unknown]

NARRATIVE: CASE EVENT DATE: 20141015
